FAERS Safety Report 8780186 (Version 1)
Quarter: 2012Q4

REPORT INFORMATION
  Report Type: Spontaneous
  Country: US (occurrence: None)
  Receive Date: 20120831
  Receipt Date: 20120831
  Transmission Date: 20130627
  Serious: No
  Sender: FDA-Public Use
  Company Number: None

PATIENT
  Age: 65 Year
  Sex: Male
  Weight: 99.6 kg

DRUGS (2)
  1. BOCEPREVIR [Suspect]
     Route: 048
     Dates: start: 20120424
  2. RIBAVIRIN [Suspect]
     Route: 048
     Dates: start: 20120327

REACTIONS (5)
  - Leukopenia [None]
  - Anaemia [None]
  - Dyspnoea [None]
  - Asthenia [None]
  - Fatigue [None]
